FAERS Safety Report 8359447-3 (Version None)
Quarter: 2012Q2

REPORT INFORMATION
  Report Type: 
  Country: None (occurrence: None)
  Receive Date: 20120514
  Receipt Date: 20120514
  Transmission Date: 20120825
  Serious: Yes (Hospitalization)
  Sender: FDA-Public Use
  Company Number: None

PATIENT
  Sex: Female
  Weight: 43.8 kg

DRUGS (8)
  1. HYDROCORTISONE [Suspect]
     Dosage: 45 MG
     Dates: end: 20120425
  2. DAUNORUBICIN HYDROCHLORIDE [Suspect]
     Dosage: 140 MG
     Dates: end: 20120328
  3. MERCAPTOPURINE [Suspect]
     Dosage: 1150 MG
     Dates: end: 20120424
  4. VINCRISTINE SULFATE [Suspect]
     Dosage: 4 MG
     Dates: end: 20120503
  5. CYTARABINE [Suspect]
     Dosage: 1090 MG
     Dates: end: 20120425
  6. PEG-L-ASPRAGINASE (PEGASPARAGASE, ONCOSPAR) [Suspect]
     Dosage: 3375 IU
     Dates: end: 20120425
  7. METHOTREXATE [Suspect]
     Dosage: 45 MG
     Dates: end: 20120425
  8. CYCLOPHOSPHAMIDE [Suspect]
     Dosage: 2800 MG
     Dates: end: 20120509

REACTIONS (17)
  - INAPPROPRIATE AFFECT [None]
  - NEUTROPHIL COUNT DECREASED [None]
  - HEART RATE INCREASED [None]
  - BALANCE DISORDER [None]
  - HYPOAESTHESIA ORAL [None]
  - PLATELET COUNT DECREASED [None]
  - GRIMACING [None]
  - BODY TEMPERATURE DECREASED [None]
  - AFFECT LABILITY [None]
  - NAUSEA [None]
  - DISINHIBITION [None]
  - OXYGEN SATURATION DECREASED [None]
  - MEMORY IMPAIRMENT [None]
  - ABNORMAL BEHAVIOUR [None]
  - BLEPHAROSPASM [None]
  - PROTRUSION TONGUE [None]
  - HAEMOGLOBIN DECREASED [None]
